FAERS Safety Report 6671104-8 (Version None)
Quarter: 2010Q2

REPORT INFORMATION
  Report Type: 
  Country: None (occurrence: None)
  Receive Date: 20100406
  Receipt Date: 20100406
  Transmission Date: 20101027
  Serious: Yes (Hospitalization)
  Sender: FDA-Public Use
  Company Number: None

PATIENT
  Age: 61 Year
  Sex: Male
  Weight: 69.7 kg

DRUGS (3)
  1. ACETAMINOPHEN/DIPHENHYDRAMINE (TYLENOL PM) [Suspect]
     Indication: SLEEP DISORDER
     Dosage: 8 TAB ONCE PO
     Route: 048
     Dates: start: 20091201, end: 20091201
  2. COCAINE [Suspect]
  3. ALCOHOL [Suspect]

REACTIONS (5)
  - ALCOHOL USE [None]
  - DRUG ABUSE [None]
  - DYSPNOEA [None]
  - HEPATIC ENZYME INCREASED [None]
  - INCORRECT DOSE ADMINISTERED [None]
